FAERS Safety Report 6236483-4 (Version None)
Quarter: 2009Q2

REPORT INFORMATION
  Report Type: 
  Country: None (occurrence: None)
  Receive Date: 20090619
  Receipt Date: 20090608
  Transmission Date: 20091009
  Serious: Yes (Hospitalization)
  Sender: FDA-Public Use
  Company Number: FR-PFIZER INC-2009223724

PATIENT
  Age: 39 Year

DRUGS (7)
  1. NEURONTIN [Suspect]
     Dosage: 300 MG, 1X/DAY
     Route: 048
     Dates: start: 20081230, end: 20090119
  2. TARGOCID [Suspect]
     Dosage: 600 MG, 2X/DAY
     Route: 042
     Dates: start: 20081231, end: 20090113
  3. POLARAMINE [Suspect]
     Dosage: 2 MG, 2X/DAY
     Route: 048
     Dates: start: 20090114, end: 20090119
  4. EFFEXOR [Suspect]
     Dosage: 37.5 MG, 1X/DAY
     Route: 048
     Dates: start: 20090114, end: 20090120
  5. ROCEPHIN [Concomitant]
  6. CIFLOX [Concomitant]
  7. GENTAMYCIN SULFATE [Concomitant]

REACTIONS (1)
  - AGRANULOCYTOSIS [None]
